FAERS Safety Report 5446872-3 (Version None)
Quarter: 2007Q3

REPORT INFORMATION
  Report Type: 
  Country: None (occurrence: None)
  Receive Date: 20070907
  Receipt Date: 20070830
  Transmission Date: 20080115
  Serious: Yes (Other)
  Sender: FDA-Public Use
  Company Number: JP-PFIZER INC-2007073268

PATIENT
  Age: 2 Month
  Sex: Female

DRUGS (4)
  1. SOLU-MEDROL [Suspect]
     Indication: KAWASAKI'S DISEASE
     Route: 042
  2. GLOVENIN I [Suspect]
     Indication: KAWASAKI'S DISEASE
     Dosage: TEXT:TOTAL DAILY DOSE: 2G/KG
  3. PREDNISOLONE [Concomitant]
     Indication: KAWASAKI'S DISEASE
  4. HEPARIN SODIUM [Concomitant]
     Route: 042

REACTIONS (2)
  - EXTREMITY NECROSIS [None]
  - PERIPHERAL EMBOLISM [None]
